FAERS Safety Report 11057590 (Version 1)
Quarter: 2015Q2

REPORT INFORMATION
  Report Type: Spontaneous
  Country: BR (occurrence: BR)
  Receive Date: 20150422
  Receipt Date: 20150422
  Transmission Date: 20150821
  Serious: Yes (Hospitalization, Other)
  Sender: FDA-Public Use
  Company Number: BR-009507513-1504BRA018017

PATIENT
  Age: 63 Year
  Sex: Female

DRUGS (7)
  1. AAS [Concomitant]
     Active Substance: ASPIRIN
     Dosage: UNK
  2. SIMVASTATIN. [Suspect]
     Active Substance: SIMVASTATIN
     Indication: BLOOD CHOLESTEROL
     Dosage: UNK
     Route: 048
     Dates: end: 2005
  3. LIPITOR [Concomitant]
     Active Substance: ATORVASTATIN CALCIUM
     Dosage: 40 MG, BID
     Dates: start: 201504
  4. NEXIUM [Concomitant]
     Active Substance: ESOMEPRAZOLE MAGNESIUM
     Dosage: UNK
  5. METFORMIN [Concomitant]
     Active Substance: METFORMIN HYDROCHLORIDE
     Dosage: UNK
  6. ARADOIS [Concomitant]
     Active Substance: LOSARTAN POTASSIUM
  7. ARADOIS H [Concomitant]
     Active Substance: HYDROCHLOROTHIAZIDE\LOSARTAN POTASSIUM
     Dosage: UNK

REACTIONS (10)
  - Drug ineffective [Unknown]
  - Tendon rupture [Unknown]
  - Fatigue [Unknown]
  - Coronary artery bypass [Unknown]
  - Cardiac operation [Unknown]
  - Peripheral artery stent insertion [Unknown]
  - Electrical burn [Unknown]
  - Angioplasty [Unknown]
  - Cardiac operation [Unknown]
  - Vascular catheterisation [Unknown]

NARRATIVE: CASE EVENT DATE: 200503
